FAERS Safety Report 15546021 (Version 1)
Quarter: 2018Q4

REPORT INFORMATION
  Report Type: Spontaneous
  Country: FR (occurrence: FR)
  Receive Date: 20181024
  Receipt Date: 20181024
  Transmission Date: 20190205
  Serious: Yes (Hospitalization)
  Sender: FDA-Public Use
  Company Number: FR-PFIZER INC-2018418486

PATIENT
  Age: 21 Year
  Sex: Male
  Weight: 91 kg

DRUGS (6)
  1. BLEOMYCIN (BLEOMYCIN SULFATE) [Suspect]
     Active Substance: BLEOMYCIN SULFATE
     Indication: HODGKIN^S DISEASE STAGE III
     Dosage: 21 MG, 1X/DAY
     Route: 041
     Dates: start: 20180112, end: 20180112
  2. VINCRISTINE SULFATE. [Suspect]
     Active Substance: VINCRISTINE SULFATE
     Indication: HODGKIN^S DISEASE STAGE III
     Dosage: 2 MG, 1X/DAY
     Route: 041
     Dates: start: 20180112, end: 20180112
  3. DOXORUBICIN ACCORD [Suspect]
     Active Substance: DOXORUBICIN HYDROCHLORIDE
     Indication: HODGKIN^S DISEASE STAGE III
     Dosage: 76 MG, 1X/DAY
     Route: 041
     Dates: start: 20180105, end: 20180105
  4. ETOPOSIDE TEVA [Suspect]
     Active Substance: ETOPOSIDE
     Indication: HODGKIN^S DISEASE STAGE III
     Dosage: 440 MG, 1X/DAY
     Route: 041
     Dates: start: 20180105, end: 20180107
  5. NATULAN [Suspect]
     Active Substance: PROCARBAZINE HYDROCHLORIDE
     Indication: HODGKIN^S DISEASE STAGE III
     Dosage: 200 MG, 1X/DAY
     Route: 048
     Dates: start: 20180105, end: 20180111
  6. ENDOXAN [CYCLOPHOSPHAMIDE MONOHYDRATE] [Suspect]
     Active Substance: CYCLOPHOSPHAMIDE
     Indication: HODGKIN^S DISEASE STAGE III
     Dosage: 2750 MG, 1X/DAY
     Route: 042
     Dates: start: 20180105, end: 20180105

REACTIONS (1)
  - Bone marrow failure [Recovered/Resolved]

NARRATIVE: CASE EVENT DATE: 20180115
